FAERS Safety Report 17588282 (Version 1)
Quarter: 2020Q1

REPORT INFORMATION
  Report Type: Spontaneous
  Country: US (occurrence: US)
  Receive Date: 20200327
  Receipt Date: 20200327
  Transmission Date: 20200409
  Serious: No
  Sender: FDA-Public Use
  Company Number: US-GLAXOSMITHKLINE-US2020049335

PATIENT

DRUGS (1)
  1. MEPOLIZUMAB POWDER FOR INJECTION [Suspect]
     Active Substance: MEPOLIZUMAB
     Indication: EOSINOPHILIC GRANULOMATOSIS WITH POLYANGIITIS
     Dosage: 75 MG
     Route: 042

REACTIONS (1)
  - Off label use [Unknown]
